FAERS Safety Report 21762305 (Version 1)
Quarter: 2022Q4

REPORT INFORMATION
  Report Type: Other
  Country: ES (occurrence: None)
  Receive Date: 20221221
  Receipt Date: 20221221
  Transmission Date: 20230113
  Serious: Yes (Other)
  Sender: FDA-Public Use
  Company Number: ES-Navinta LLC-000321

PATIENT
  Age: 27 Year

DRUGS (3)
  1. RIBAVIRIN [Suspect]
     Active Substance: RIBAVIRIN
     Indication: Hepatitis E
     Dosage: 1000 MG
     Dates: start: 20200318, end: 20200520
  2. RIBAVIRIN [Suspect]
     Active Substance: RIBAVIRIN
     Indication: Hepatitis E
     Dosage: 800 MG
     Dates: start: 20191002, end: 20191218
  3. RIBAVIRIN [Suspect]
     Active Substance: RIBAVIRIN
     Indication: Hepatitis E
     Dosage: 600 MG
     Dates: start: 20180731, end: 20181023

REACTIONS (3)
  - Hepatitis E [Not Recovered/Not Resolved]
  - Disease recurrence [Not Recovered/Not Resolved]
  - Treatment failure [Not Recovered/Not Resolved]
